FAERS Safety Report 8168157-7 (Version None)
Quarter: 2012Q1

REPORT INFORMATION
  Report Type: 
  Country: None (occurrence: None)
  Receive Date: 20120227
  Receipt Date: 20120221
  Transmission Date: 20120608
  Serious: Yes (Hospitalization)
  Sender: FDA-Public Use
  Company Number: PHHY2012IT015818

PATIENT
  Sex: Female

DRUGS (4)
  1. LANSOPRAZOLE [Concomitant]
     Dosage: 30 MG, UNK
     Route: 048
  2. OXCARBAZEPINE [Suspect]
     Dosage: 300 MG, DAILY
     Route: 048
     Dates: start: 20110901, end: 20111204
  3. KEPPRA [Suspect]
     Dosage: 500 MG, QD
     Dates: start: 20110901, end: 20111204
  4. DEXAMETHASONE SODIUM PHOSPHATE [Concomitant]
     Dosage: 64 DRP, UNK
     Route: 048

REACTIONS (1)
  - CHOLESTASIS [None]
